FAERS Safety Report 15238019 (Version 1)
Quarter: 2018Q3

REPORT INFORMATION
  Report Type: Other
  Country: None (occurrence: DE)
  Receive Date: 20180803
  Receipt Date: 20180803
  Transmission Date: 20181010
  Serious: Yes (Other)
  Sender: FDA-Public Use
  Company Number: DE-MEDAC PHARMA, INC.-2053168

PATIENT
  Age: 79 Year
  Sex: Male

DRUGS (2)
  1. PREDNISOLONE. [Concomitant]
     Active Substance: PREDNISOLONE
  2. METHOTREXATE. [Suspect]
     Active Substance: METHOTREXATE
     Indication: SERONEGATIVE ARTHRITIS

REACTIONS (4)
  - Myeloproliferative neoplasm [Unknown]
  - Anaplastic large-cell lymphoma [Unknown]
  - Angiocentric lymphoma [Unknown]
  - Chronic myelomonocytic leukaemia [Unknown]

NARRATIVE: CASE EVENT DATE: 201606
